FAERS Safety Report 6676719-9 (Version None)
Quarter: 2010Q2

REPORT INFORMATION
  Report Type: 
  Country: None (occurrence: None)
  Receive Date: 20100412
  Receipt Date: 20100331
  Transmission Date: 20101027
  Serious: Yes (Death)
  Sender: FDA-Public Use
  Company Number: US-ROCHE-677578

PATIENT
  Age: 52 Year
  Sex: Female
  Weight: 80.5 kg

DRUGS (3)
  1. BEVACIZUMAB [Suspect]
     Dosage: CYCLE: 21 DAYS, REPORTED FREQUENCY: OVER 30-90 MINUTES ON DAY 1.TOTAL DOSE ADMINISTERED 1211 MG
     Route: 042
     Dates: start: 20091216
  2. CISPLATIN [Suspect]
     Dosage: REPORTED FREQUENCY: OVER 1-2 HOURS ON DAY 1. TOTAL DOSE ADMINISTERED 143 MG
     Route: 042
     Dates: start: 20091216
  3. DOCETAXEL [Suspect]
     Dosage: REPORTED FREQUENCY: OVER 1 HOUR ON DAY 1.TOTAL DOSE ADMINISTERED 143 MG
     Route: 042
     Dates: start: 20091216

REACTIONS (2)
  - ATRIOVENTRICULAR BLOCK COMPLETE [None]
  - CONDUCTION DISORDER [None]
